FAERS Safety Report 5367540-2 (Version None)
Quarter: 2007Q2

REPORT INFORMATION
  Report Type: 
  Country: None (occurrence: None)
  Receive Date: 20070622
  Receipt Date: 20061110
  Transmission Date: 20071010
  Serious: No
  Sender: FDA-Public Use
  Company Number: US-ASTRAZENECA-2006UW23459

PATIENT
  Age: 7 Year
  Sex: Female

DRUGS (3)
  1. PULMICORT RESPULES [Suspect]
     Indication: ASTHMA
     Route: 055
     Dates: start: 20061101
  2. XOPENEX [Concomitant]
  3. PEDIAPRED [Concomitant]

REACTIONS (2)
  - FLUSHING [None]
  - TACHYCARDIA [None]
